FAERS Safety Report 6436392-1 (Version None)
Quarter: 2009Q4

REPORT INFORMATION
  Report Type: 
  Country: None (occurrence: None)
  Receive Date: 20091110
  Receipt Date: 20091110
  Transmission Date: 20100525
  Serious: Yes (Other)
  Sender: FDA-Public Use
  Company Number: None

PATIENT
  Sex: Female
  Weight: 131.5431 kg

DRUGS (2)
  1. METHOCARBAMOL [Suspect]
     Dates: start: 20070101, end: 20091106
  2. SEROQUIL [Concomitant]

REACTIONS (1)
  - DRUG PRESCRIBING ERROR [None]
